FAERS Safety Report 13040515 (Version 1)
Quarter: 2016Q4

REPORT INFORMATION
  Report Type: Spontaneous
  Country: US (occurrence: US)
  Receive Date: 20161219
  Receipt Date: 20161219
  Transmission Date: 20170207
  Serious: Yes (Hospitalization)
  Sender: FDA-Public Use
  Company Number: US-SA-2016SA004446

PATIENT
  Age: 79 Year
  Sex: Male
  Weight: 74.7 kg

DRUGS (12)
  1. XARELTO [Suspect]
     Active Substance: RIVAROXABAN
     Indication: ANTICOAGULANT THERAPY
     Route: 048
     Dates: start: 2010, end: 20151116
  2. IMDUR [Concomitant]
     Active Substance: ISOSORBIDE MONONITRATE
     Dates: start: 2005
  3. PRAVASTATIN. [Concomitant]
     Active Substance: PRAVASTATIN
     Dates: start: 2005
  4. POTASSIUM CHLORIDE. [Concomitant]
     Active Substance: POTASSIUM CHLORIDE
     Dates: start: 20141015
  5. EZETIMIBE. [Concomitant]
     Active Substance: EZETIMIBE
     Dates: start: 2005
  6. PLAVIX [Suspect]
     Active Substance: CLOPIDOGREL BISULFATE
     Indication: ANTIPLATELET THERAPY
     Route: 048
     Dates: start: 201509
  7. BLINDED THERAPY [Suspect]
     Active Substance: INVESTIGATIONAL PRODUCT
     Indication: CARDIAC AMYLOIDOSIS
     Route: 065
     Dates: start: 20140707
  8. ASPIRIN. [Suspect]
     Active Substance: ASPIRIN
     Indication: ANTICOAGULANT THERAPY
     Route: 048
     Dates: start: 2005, end: 20151118
  9. RIVAROXABAN [Concomitant]
     Active Substance: RIVAROXABAN
     Dates: start: 2010
  10. XARELTO [Suspect]
     Active Substance: RIVAROXABAN
     Indication: ANTICOAGULANT THERAPY
     Route: 048
     Dates: start: 20151118
  11. HYDROCHLOROTHIAZIDE. [Concomitant]
     Active Substance: HYDROCHLOROTHIAZIDE
     Dates: start: 20141211
  12. TORSEMIDE. [Concomitant]
     Active Substance: TORSEMIDE
     Dates: start: 20130610

REACTIONS (1)
  - Melaena [Recovered/Resolved]

NARRATIVE: CASE EVENT DATE: 20151116
